FAERS Safety Report 7602866-0 (Version None)
Quarter: 2011Q3

REPORT INFORMATION
  Report Type: 
  Country: None (occurrence: None)
  Receive Date: 20110711
  Receipt Date: 20110711
  Transmission Date: 20111222
  Serious: No
  Sender: FDA-Public Use
  Company Number: None

PATIENT
  Age: 53 Year
  Sex: Female
  Weight: 79.3795 kg

DRUGS (1)
  1. CLARITHROMYCIN [Suspect]
     Indication: BRONCHITIS
     Dosage: 500 MG ONCE A DAY PO DAYS
     Route: 048
     Dates: start: 20110610, end: 20110619

REACTIONS (2)
  - ANOSMIA [None]
  - HYPOGEUSIA [None]
